FAERS Safety Report 6153131-2 (Version None)
Quarter: 2009Q2

REPORT INFORMATION
  Report Type: 
  Country: None (occurrence: None)
  Receive Date: 20090409
  Receipt Date: 20090330
  Transmission Date: 20091009
  Serious: Yes (Hospitalization)
  Sender: FDA-Public Use
  Company Number: 232763K09USA

PATIENT

DRUGS (10)
  1. REBIF [Suspect]
     Indication: OFF LABEL USE
     Dosage: 8.8 MCG, 3 IN 1 WEEKS, SUBCUTANEOUS
     Route: 058
     Dates: start: 20090226
  2. COUMADIN [Suspect]
     Dosage: 2 MG, 1 IN 1 DAYS
     Dates: start: 20071101, end: 20090311
  3. LORTAB (VICODIN) [Concomitant]
  4. AMANTADINE HCL [Concomitant]
  5. BACLOFEN [Concomitant]
  6. NEXIUM [Concomitant]
  7. ENULOSE [Concomitant]
  8. DETROL [Concomitant]
  9. PULMOCARE [Concomitant]
  10. NEURONTIN [Concomitant]

REACTIONS (4)
  - BLADDER DISORDER [None]
  - OFF LABEL USE [None]
  - URINARY TRACT INFECTION [None]
  - VASCULAR RUPTURE [None]
